FAERS Safety Report 8741627 (Version 2)
Quarter: 2012Q4

REPORT INFORMATION
  Report Type: 
  Country: US (occurrence: US)
  Receive Date: 20120824
  Receipt Date: 20121212
  Transmission Date: 20130627
  Serious: Yes (Other)
  Sender: FDA-Public Use
  Company Number: US-ASTRAZENECA-2009SE29470

PATIENT
  Age: 86 Year
  Sex: Female
  Weight: 62.6 kg

DRUGS (9)
  1. SYMBICORT PMDI [Suspect]
     Indication: ASTHMA
     Dosage: 740MCG BID
     Route: 055
  2. SYMBICORT PMDI [Suspect]
     Indication: ASTHMA
     Dosage: 160 MICROGAMS TWO PUFFS TWICE A DAY
     Route: 055
     Dates: start: 2008
  3. SYMBICORT PMDI [Suspect]
     Indication: ASTHMA
     Dosage: 160/4.5 MICROGRAMS UNKNOWN
     Route: 055
  4. SYMBICORT PMDI [Suspect]
     Indication: ASTHMA
     Dosage: UNKNOWN
     Route: 055
  5. NEXIUM [Concomitant]
  6. HYDRALAZINE [Concomitant]
     Indication: BLOOD PRESSURE ABNORMAL
  7. DILTIAZEM [Concomitant]
     Indication: BLOOD PRESSURE ABNORMAL
  8. ZYRTEC [Concomitant]
  9. ASPIRIN [Concomitant]

REACTIONS (6)
  - Myocardial infarction [Unknown]
  - Pain in extremity [Unknown]
  - Tinea pedis [Unknown]
  - Asthma [Unknown]
  - Adverse event [Unknown]
  - Intentional drug misuse [Unknown]
